FAERS Safety Report 11235823 (Version 1)
Quarter: 2015Q3

REPORT INFORMATION
  Report Type: Spontaneous
  Country: IT (occurrence: IT)
  Receive Date: 20150702
  Receipt Date: 20150702
  Transmission Date: 20151125
  Serious: Yes (Other)
  Sender: FDA-Public Use
  Company Number: IT-TEVA-574623ACC

PATIENT
  Age: 52 Year
  Sex: Female

DRUGS (1)
  1. OXALIPLATIN. [Suspect]
     Active Substance: OXALIPLATIN
     Indication: COLORECTAL CANCER METASTATIC
     Dosage: 130 MG CYCLICAL
     Route: 042

REACTIONS (1)
  - Heat stroke [Recovered/Resolved]

NARRATIVE: CASE EVENT DATE: 20150619
